FAERS Safety Report 22228590 (Version 1)
Quarter: 2023Q2

REPORT INFORMATION
  Report Type: Spontaneous
  Country: US (occurrence: None)
  Receive Date: 20230418
  Receipt Date: 20230418
  Transmission Date: 20230721
  Serious: No
  Sender: FDA-Public Use
  Company Number: None

PATIENT
  Age: 55 Year
  Sex: Female
  Weight: 68.85 kg

DRUGS (10)
  1. MONTELUKAST [Suspect]
     Active Substance: MONTELUKAST SODIUM
     Indication: Asthma
  2. ARNUITY ELLIPTA [Concomitant]
     Active Substance: FLUTICASONE FUROATE
  3. Elipta [Concomitant]
  4. FLONASE [Concomitant]
     Active Substance: FLUTICASONE PROPIONATE
  5. CARBAMAZEPINE [Concomitant]
     Active Substance: CARBAMAZEPINE
  6. Vitamin D [Concomitant]
  7. Eldeberry [Concomitant]
  8. LYSINE [Concomitant]
     Active Substance: LYSINE
  9. D MANNOSE [Concomitant]
  10. OREGANO LEAF OIL [Concomitant]
     Active Substance: OREGANO LEAF OIL

REACTIONS (5)
  - Depressed mood [None]
  - Depressed mood [None]
  - Depression [None]
  - Asthenia [None]
  - Crying [None]

NARRATIVE: CASE EVENT DATE: 20230417
